FAERS Safety Report 8575147-9 (Version None)
Quarter: 2012Q2

REPORT INFORMATION
  Report Type: 
  Country: None (occurrence: None)
  Receive Date: 20120423
  Receipt Date: 20100618
  Transmission Date: 20120825
  Serious: Yes (Hospitalization)
  Sender: FDA-Public Use
  Company Number: PHEH2009US14309

PATIENT
  Age: 75 Year
  Sex: Male
  Weight: 63.2 kg

DRUGS (11)
  1. EXJADE [Suspect]
     Indication: MYELODYSPLASTIC SYNDROME
     Dosage: 500 MG DAILY, ORAL, 625 MG, DAILY
     Route: 048
     Dates: start: 20090929
  2. EXJADE [Suspect]
     Indication: IRON OVERLOAD
     Dosage: 500 MG DAILY, ORAL, 625 MG, DAILY
     Route: 048
     Dates: start: 20090929
  3. EXJADE [Suspect]
     Indication: MYELODYSPLASTIC SYNDROME
     Dosage: 500 MG DAILY, ORAL, 625 MG, DAILY
     Route: 048
     Dates: start: 20090901
  4. EXJADE [Suspect]
     Indication: IRON OVERLOAD
     Dosage: 500 MG DAILY, ORAL, 625 MG, DAILY
     Route: 048
     Dates: start: 20090901
  5. EPOGEN [Concomitant]
  6. PRILOSEC [Concomitant]
  7. TRANSFUSIONS (NO INGREDIENTS/SUBSTANCES) [Concomitant]
  8. FLOMAX [Concomitant]
  9. TOPROL-XL [Concomitant]
  10. NEUPOGEN [Concomitant]
  11. FINASTERIDE [Concomitant]

REACTIONS (2)
  - INFECTION [None]
  - RENAL DISORDER [None]
